FAERS Safety Report 6785151-9 (Version None)
Quarter: 2010Q2

REPORT INFORMATION
  Report Type: 
  Country: None (occurrence: None)
  Receive Date: 20100618
  Receipt Date: 20100609
  Transmission Date: 20101027
  Serious: No
  Sender: FDA-Public Use
  Company Number: 009848

PATIENT
  Age: 77 Year
  Sex: Male

DRUGS (7)
  1. PLETAL [Suspect]
     Dosage: 50 MG, BID, ORAL
     Route: 048
     Dates: start: 20100117
  2. AMLODIN (AMLODIPINE BESILATE) TABLET [Concomitant]
  3. PLAVIX [Concomitant]
  4. PREMINENT (LOSARTAN POTASSIUM_ HYDROCHLOROTHIAZIDE) TABLET [Concomitant]
  5. DEPAS (ETIZOLAM) [Concomitant]
  6. MAGLAX (MAGNESIUM OXIDE) [Concomitant]
  7. FAMOTIDINE [Concomitant]

REACTIONS (1)
  - HYPERKALAEMIA [None]
